FAERS Safety Report 4726395-7 (Version None)
Quarter: 2005Q3

REPORT INFORMATION
  Report Type: 
  Country: None (occurrence: None)
  Receive Date: 20050726
  Receipt Date: 20050713
  Transmission Date: 20060218
  Serious: Yes (Death)
  Sender: FDA-Public Use
  Company Number: 2005103401

PATIENT
  Age: 69 Year
  Sex: Female

DRUGS (4)
  1. BEXTRA [Suspect]
     Indication: BACK DISORDER
     Dosage: (40 MG), ORAL
     Route: 048
  2. BEXTRA [Suspect]
     Indication: MUSCULOSKELETAL PAIN
     Dosage: (40 MG), ORAL
     Route: 048
  3. VOLTAREN [Concomitant]
  4. KETOPROFEN [Concomitant]

REACTIONS (1)
  - DEATH [None]
